FAERS Safety Report 23358746 (Version 1)
Quarter: 2024Q1

REPORT INFORMATION
  Report Type: Report from Study
  Country: IT (occurrence: IT)
  Receive Date: 20240102
  Receipt Date: 20240102
  Transmission Date: 20240410
  Serious: Yes (Death, Other)
  Sender: FDA-Public Use
  Company Number: None

PATIENT
  Age: 84 Year
  Sex: Female

DRUGS (1)
  1. ELIQUIS [Suspect]
     Active Substance: APIXABAN
     Indication: Atrial fibrillation
     Dates: start: 20200109, end: 20231203

REACTIONS (6)
  - Vomiting [Fatal]
  - Sopor [Fatal]
  - Asthenia [Fatal]
  - Cerebral haemorrhage [Fatal]
  - Blood pressure increased [Fatal]
  - Hemiplegia [Fatal]

NARRATIVE: CASE EVENT DATE: 20231203
